FAERS Safety Report 25250001 (Version 1)
Quarter: 2025Q2

REPORT INFORMATION
  Report Type: Spontaneous
  Country: US (occurrence: None)
  Receive Date: 20250428
  Receipt Date: 20250428
  Transmission Date: 20250717
  Serious: Yes (Congenital Anomaly)
  Sender: FDA-CTU
  Company Number: None

PATIENT
  Age: 30 Year
  Sex: Female
  Weight: 54.43 kg

DRUGS (1)
  1. ONDANSETRON [Suspect]
     Active Substance: ONDANSETRON
     Indication: Vomiting
     Dosage: 8 MG/MG BID ORAL
     Route: 048
     Dates: start: 20200919, end: 20200921

REACTIONS (3)
  - Hydronephrosis [None]
  - Congenital hydronephrosis [None]
  - Maternal drugs affecting foetus [None]

NARRATIVE: CASE EVENT DATE: 20210511
